FAERS Safety Report 7221799-5 (Version None)
Quarter: 2011Q1

REPORT INFORMATION
  Report Type: 
  Country: None (occurrence: None)
  Receive Date: 20110112
  Receipt Date: 20110104
  Transmission Date: 20110831
  Serious: Yes (Other)
  Sender: FDA-Public Use
  Company Number: FR-SANOFI-AVENTIS-2011SA001479

PATIENT

DRUGS (2)
  1. VIT K ANTAGONISTS [Suspect]
     Route: 065
  2. MULTAQ [Suspect]
     Route: 048
     Dates: end: 20101201

REACTIONS (1)
  - INTERNATIONAL NORMALISED RATIO INCREASED [None]
